FAERS Safety Report 6972913-8 (Version None)
Quarter: 2010Q3

REPORT INFORMATION
  Report Type: 
  Country: None (occurrence: None)
  Receive Date: 20100909
  Receipt Date: 20100831
  Transmission Date: 20110219
  Serious: Yes (Life-Threatening)
  Sender: FDA-Public Use
  Company Number: AT-WYE-H17313010

PATIENT
  Age: 57 Year
  Sex: Female
  Weight: 60 kg

DRUGS (8)
  1. PANTOPRAZOLE [Suspect]
     Dosage: 20 MG ON DEMAND
     Route: 048
  2. HUMIRA [Suspect]
     Indication: RHEUMATOID ARTHRITIS
     Dosage: 1 DF WITH INTERVAL
     Route: 058
  3. SIMVASTATIN [Concomitant]
     Dosage: 40 MG
     Route: 048
     Dates: start: 20081101
  4. REMICADE [Concomitant]
     Indication: RHEUMATOID ARTHRITIS
     Dosage: 100 MG FREQUENCY UNSPECIFIED
     Route: 042
  5. SALAZOPYRIN [Concomitant]
     Indication: IMMUNOSUPPRESSION
     Dosage: 500 MG FREQUENCY NOT SPECIFIED
     Route: 048
  6. VOLTAREN [Concomitant]
     Dosage: 50 MG ON DEMAND
     Route: 048
  7. ARAVA [Suspect]
     Indication: RHEUMATOID ARTHRITIS
     Dosage: 20 MG ON DEMAND
     Route: 048
     Dates: start: 19990101
  8. METHOTREXATE [Concomitant]
     Indication: RHEUMATOID ARTHRITIS
     Dosage: 10 TO 20 MG WEEKLY
     Route: 048
     Dates: start: 19960101, end: 20010101

REACTIONS (1)
  - ADENOCARCINOMA [None]
